FAERS Safety Report 11286695 (Version 1)
Quarter: 2015Q3

REPORT INFORMATION
  Report Type: Spontaneous
  Country: US (occurrence: US)
  Receive Date: 20150721
  Receipt Date: 20150721
  Transmission Date: 20151125
  Serious: No
  Sender: FDA-Public Use
  Company Number: US-UNITED THERAPEUTICS-UNT-2015-005978

PATIENT
  Age: 50 Year
  Sex: Female
  Weight: 63.49 kg

DRUGS (6)
  1. DIGOXIN. [Concomitant]
     Active Substance: DIGOXIN
     Indication: PRODUCT USED FOR UNKNOWN INDICATION
  2. COUMADIN [Concomitant]
     Active Substance: WARFARIN SODIUM
     Indication: PRODUCT USED FOR UNKNOWN INDICATION
  3. REVATIO [Concomitant]
     Active Substance: SILDENAFIL CITRATE
     Indication: PRODUCT USED FOR UNKNOWN INDICATION
  4. ORENITRAM [Suspect]
     Active Substance: TREPROSTINIL
     Dosage: 0.125 MG, TID
     Route: 048
     Dates: start: 20150509
  5. ORENITRAM [Suspect]
     Active Substance: TREPROSTINIL
     Indication: PULMONARY HYPERTENSION
     Dosage: 0.375 MG, TID
     Route: 048
     Dates: start: 20150422
  6. FUROSEMIDE. [Concomitant]
     Active Substance: FUROSEMIDE
     Indication: PRODUCT USED FOR UNKNOWN INDICATION

REACTIONS (7)
  - Hyperhidrosis [Not Recovered/Not Resolved]
  - Hot flush [Not Recovered/Not Resolved]
  - Feeling cold [Unknown]
  - Dyspepsia [Unknown]
  - Ascites [Unknown]
  - Dyspnoea [Unknown]
  - Weight increased [Unknown]

NARRATIVE: CASE EVENT DATE: 201505
